FAERS Safety Report 9882558 (Version 3)
Quarter: 2014Q1

REPORT INFORMATION
  Report Type: Report from Study
  Country: FR (occurrence: FR)
  Receive Date: 20140207
  Receipt Date: 20140214
  Transmission Date: 20141002
  Serious: Yes (Hospitalization, Disabling)
  Sender: FDA-Public Use
  Company Number: FR-VERTEX PHARMACEUTICALS INC-2014-000287

PATIENT
  Age: 47 Year
  Sex: Male
  Weight: 65 kg

DRUGS (39)
  1. VX-950 (TELAPREVIR) [Suspect]
     Indication: HEPATITIS C
     Dosage: UNK, TID
     Dates: start: 20130122, end: 20130415
  2. Z-RIBAVIRIN [Suspect]
     Dosage: 600 MG, BID
     Dates: start: 20130122, end: 20130122
  3. Z-RIBAVIRIN [Suspect]
     Dosage: 1000 MG, BID
     Dates: start: 20130123, end: 20130202
  4. Z-RIBAVIRIN [Suspect]
     Dosage: 600 MG, QD
     Dates: start: 20130203, end: 20130203
  5. Z-RIBAVIRIN [Suspect]
     Dosage: 1000 MG, BID
     Dates: start: 20130204, end: 20130217
  6. Z-RIBAVIRIN [Suspect]
     Dosage: 800 MG, BID
     Dates: start: 20130218, end: 20130929
  7. Z-RIBAVIRIN [Suspect]
     Dosage: 600 MG, BID
     Dates: start: 20130930
  8. Z-RIBAVIRIN [Suspect]
     Dosage: 600 MG, QD
     Dates: end: 20131217
  9. Z-PEGYLATED INTERFERON-2A [Suspect]
     Indication: HEPATITIS C
     Dosage: 180 ?G, QW
     Dates: start: 20130122, end: 20131027
  10. Z-PEGYLATED INTERFERON-2A [Suspect]
     Dosage: 135 ?G, QW
     Dates: start: 20131027, end: 20131217
  11. TACROLIMUS [Concomitant]
     Dosage: 3 MG, QD
     Route: 048
     Dates: start: 20120710, end: 20130122
  12. TACROLIMUS [Concomitant]
     Dosage: 1 MG, QD
     Route: 048
     Dates: start: 20130123, end: 20130123
  13. TACROLIMUS [Concomitant]
     Dosage: 0.5 MG, QD
     Route: 048
     Dates: start: 20130205, end: 20130205
  14. TACROLIMUS [Concomitant]
     Dosage: 0.5 MG, QD
     Route: 048
     Dates: start: 20130207, end: 20130207
  15. TACROLIMUS [Concomitant]
     Dosage: 0.5 MG, 1DOSE/3 DAYS
     Route: 048
     Dates: start: 20130301, end: 20130306
  16. TACROLIMUS [Concomitant]
     Dosage: 0.5 MG, QOD
     Route: 048
     Dates: start: 20130307, end: 20130415
  17. TACROLIMUS [Concomitant]
     Dosage: 3 MG, QD
     Route: 048
     Dates: start: 20130416, end: 20130422
  18. TACROLIMUS [Concomitant]
     Dosage: 4 MG, QD
     Route: 048
     Dates: start: 20130423, end: 20130429
  19. TACROLIMUS [Concomitant]
     Dosage: 6 MG, QD
     Route: 048
     Dates: start: 20130430, end: 20130609
  20. SOLUPRED [Concomitant]
     Indication: TRANSPLANT
     Dosage: DOSAGE FORM: TABLET
     Route: 048
     Dates: end: 20130127
  21. SOLUPRED [Concomitant]
     Dosage: DOSAGE FORM: TABLET
     Route: 048
     Dates: start: 20130129, end: 20130806
  22. SOLUPRED [Concomitant]
     Dosage: DOSAGE FORM: TABLET
     Route: 048
     Dates: start: 20130806, end: 20130929
  23. SOLUPRED [Concomitant]
     Dosage: DOSAGE FORM: TABLET
     Route: 048
     Dates: start: 20130930, end: 20131027
  24. SOLUPRED [Concomitant]
     Dosage: DOSAGE FORM: TABLET, IN MORNING
     Route: 048
     Dates: start: 20131028, end: 20131215
  25. SOLUPRED [Concomitant]
     Dosage: DOSAGE FORM: TABLET
     Route: 048
     Dates: start: 20131216
  26. AERIUS [Concomitant]
     Indication: PRURITUS
     Route: 048
     Dates: start: 20130212, end: 20130312
  27. DETENSIEL [Concomitant]
     Indication: HYPERTENSION
     Dosage: 5 MG, QD
     Route: 048
  28. LORAZEPAM [Concomitant]
     Indication: ANXIETY
     Dosage: 0.5 MG, QD
     Route: 048
  29. BETAMETHASONE [Concomitant]
     Indication: PRURITUS
     Dosage: 1 DF, BID
     Route: 061
     Dates: start: 20130305, end: 20130311
  30. BETAMETHASONE [Concomitant]
     Indication: ANORECTAL DISCOMFORT
     Dosage: 1 DF, BID
     Route: 061
     Dates: start: 20130402, end: 20130422
  31. BETAMETHASONE [Concomitant]
     Indication: ERYTHEMA
  32. INEXIUM [Concomitant]
     Indication: GASTROOESOPHAGEAL REFLUX DISEASE
     Dosage: DOSAGE FORM: TABLET, IN EVENING
     Route: 048
     Dates: start: 20130318
  33. PARACETAMOL [Concomitant]
     Indication: PYREXIA
     Dosage: DOSAGE FORM: UNSPECIFIED
     Route: 048
     Dates: start: 20130319, end: 20130320
  34. NEORECORMON [Concomitant]
     Indication: ANAEMIA
     Route: 058
     Dates: start: 20130423
  35. TEMESTA [Concomitant]
     Indication: ANXIETY
     Dosage: 0.5 MG, QD
     Route: 048
  36. TEMESTA [Concomitant]
     Dosage: DOSAGE FORM: TABLET, IN EVENING
  37. ADVAGRAF [Concomitant]
     Dosage: DOSAGE FORM: TABLET, IN MORNING
     Route: 065
  38. CARDENSIEL [Concomitant]
     Dosage: DOSAGE FORM: TABLET, IN MORNING
  39. EPOETIN NOS [Concomitant]
     Dosage: 5 MG, QD

REACTIONS (3)
  - Blood alkaline phosphatase increased [Not Recovered/Not Resolved]
  - Gamma-glutamyltransferase increased [Not Recovered/Not Resolved]
  - Biliary anastomosis complication [Not Recovered/Not Resolved]
